FAERS Safety Report 24082966 (Version 2)
Quarter: 2024Q3

REPORT INFORMATION
  Report Type: Spontaneous
  Country: US (occurrence: US)
  Receive Date: 20240712
  Receipt Date: 20240731
  Transmission Date: 20241016
  Serious: No
  Sender: ABBVIE
  Company Number: US-ABBVIE-5834549

PATIENT
  Sex: Male

DRUGS (1)
  1. SKYRIZI [Suspect]
     Active Substance: RISANKIZUMAB-RZAA
     Indication: Psoriasis
     Route: 058

REACTIONS (10)
  - Pneumonia fungal [Unknown]
  - Pharyngitis streptococcal [Unknown]
  - Influenza like illness [Unknown]
  - Feeling abnormal [Unknown]
  - Oropharyngitis fungal [Unknown]
  - Eczema [Unknown]
  - Candida infection [Unknown]
  - Pyrexia [Unknown]
  - Oropharyngeal pain [Unknown]
  - Fungal rhinitis [Unknown]
